FAERS Safety Report 9626064 (Version 2)
Quarter: 2013Q4

REPORT INFORMATION
  Report Type: Spontaneous
  Country: JP (occurrence: JP)
  Receive Date: 20131016
  Receipt Date: 20131016
  Transmission Date: 20140711
  Serious: Yes (Other)
  Sender: FDA-Public Use
  Company Number: JP-MALLINCKRODT-T201303883

PATIENT
  Age: 66 Year
  Sex: Male
  Weight: 50 kg

DRUGS (11)
  1. METHADONE [Suspect]
     Indication: CANCER PAIN
     Dosage: 15 MG, TID
     Route: 048
     Dates: start: 20130625, end: 20130629
  2. METHADONE [Suspect]
     Dosage: 20 MG, BID
     Route: 048
     Dates: start: 20130629, end: 20130708
  3. METHADONE [Suspect]
     Dosage: 30 MG, BID
     Route: 048
     Dates: start: 20130708, end: 20130810
  4. OXINORM                            /00045603/ [Concomitant]
     Dosage: 30 MG, PRN
     Route: 048
     Dates: start: 20130625
  5. LOXOPROFEN [Concomitant]
     Dosage: 180 MG, UNK
     Route: 048
     Dates: start: 20010809
  6. NEXIUM                             /01479302/ [Concomitant]
     Dosage: 20 MG, UNK
     Route: 048
     Dates: start: 20130809
  7. LENDORMIN [Concomitant]
     Dosage: 0.25 MG, UNK
     Route: 048
     Dates: start: 20130809
  8. UBRETID [Concomitant]
     Dosage: 5 MG, UNK
     Route: 048
     Dates: start: 20130809
  9. URIEF [Concomitant]
     Dosage: 8 MG, UNK
     Route: 048
     Dates: start: 20130809
  10. MAGMITT [Concomitant]
     Dosage: 250 MG, UNK
     Route: 048
     Dates: start: 20130809
  11. MORPHINE HYDROCHLORIDE [Concomitant]
     Dosage: 384 MG, UNK
     Route: 058
     Dates: start: 20130723, end: 20130725

REACTIONS (2)
  - Pneumonia [Recovered/Resolved]
  - Somnolence [Recovered/Resolved]
